FAERS Safety Report 4683443-0 (Version None)
Quarter: 2005Q2

REPORT INFORMATION
  Report Type: 
  Country: None (occurrence: None)
  Receive Date: 20050607
  Receipt Date: 20050526
  Transmission Date: 20051028
  Serious: Yes (Other)
  Sender: FDA-Public Use
  Company Number: US-JNJFOC-20050600112

PATIENT
  Age: 34 Year
  Sex: Female
  Weight: 68.4 kg

DRUGS (9)
  1. REMICADE [Suspect]
     Dosage: MANY YEARS.
     Route: 042
  2. REMICADE [Suspect]
     Indication: CROHN'S DISEASE
     Route: 042
  3. AZA [Concomitant]
  4. AZA [Concomitant]
  5. AZA [Concomitant]
  6. AZA [Concomitant]
     Indication: CROHN'S DISEASE
  7. PREDNISONE [Concomitant]
     Indication: CROHN'S DISEASE
  8. PENTAZA [Concomitant]
     Indication: CROHN'S DISEASE
     Dosage: 3000/DAY
  9. IMURAN [Concomitant]
     Indication: CROHN'S DISEASE
     Dosage: 100/DAY

REACTIONS (2)
  - DRUG EXPOSURE DURING PREGNANCY [None]
  - LABORATORY TEST ABNORMAL [None]
